FAERS Safety Report 6951488-3 (Version None)
Quarter: 2010Q3

REPORT INFORMATION
  Report Type: 
  Country: None (occurrence: None)
  Receive Date: 20100828
  Receipt Date: 20100324
  Transmission Date: 20110219
  Serious: No
  Sender: FDA-Public Use
  Company Number: US-ABBOTT-10P-163-0635498-00

PATIENT
  Age: 40 Year
  Sex: Male

DRUGS (3)
  1. NIASPAN [Suspect]
     Indication: BLOOD CHOLESTEROL INCREASED
     Dates: start: 20100317, end: 20100320
  2. LEVOTHYROXINE [Concomitant]
     Indication: HYPOTHYROIDISM
  3. OATMEAL BATHS [Concomitant]
     Indication: GENERALISED ERYTHEMA
     Dates: start: 20100320, end: 20100320

REACTIONS (3)
  - ERYTHEMA [None]
  - GENERALISED ERYTHEMA [None]
  - PARAESTHESIA [None]
